FAERS Safety Report 5149395-4 (Version None)
Quarter: 2006Q4

REPORT INFORMATION
  Report Type: 
  Country: None (occurrence: None)
  Receive Date: 20061113
  Receipt Date: 20051212
  Transmission Date: 20070319
  Serious: No
  Sender: FDA-Public Use
  Company Number: 2005PV004810

PATIENT
  Age: 51 Year
  Sex: Male

DRUGS (7)
  1. COREG [Suspect]
     Indication: DRUG USE FOR UNKNOWN INDICATION
     Route: 048
     Dates: start: 20051102
  2. BYETTA [Suspect]
     Dosage: 5MCG TWICE PER DAY
     Route: 058
     Dates: start: 20051102
  3. METFORMIN [Concomitant]
     Dates: start: 19850101
  4. ACTOS [Concomitant]
     Dates: start: 20000101
  5. GLYBURIDE [Concomitant]
     Dates: start: 19800101
  6. LANTUS [Concomitant]
     Dates: start: 20030101
  7. NEXIUM [Concomitant]

REACTIONS (4)
  - BLOOD GLUCOSE DECREASED [None]
  - DECREASED APPETITE [None]
  - HEADACHE [None]
  - HYPOGLYCAEMIA UNAWARENESS [None]
